FAERS Safety Report 13108669 (Version 2)
Quarter: 2017Q1

REPORT INFORMATION
  Report Type: Spontaneous
  Country: US (occurrence: US)
  Receive Date: 20170112
  Receipt Date: 20170217
  Transmission Date: 20170428
  Serious: Yes (Other)
  Sender: FDA-Public Use
  Company Number: US-PFIZER INC-2017009819

PATIENT
  Sex: Female
  Weight: 1.1 kg

DRUGS (7)
  1. CAPTOPRIL. [Suspect]
     Active Substance: CAPTOPRIL
     Indication: RENOVASCULAR HYPERTENSION
     Dosage: 200 MG, DAILY
     Route: 064
  2. LABETALOL HYDROCHLORIDE. [Suspect]
     Active Substance: LABETALOL HYDROCHLORIDE
     Indication: RENOVASCULAR HYPERTENSION
     Dosage: 1600 MG, DAILY
     Route: 064
  3. TIMOLOL. [Suspect]
     Active Substance: TIMOLOL
     Dosage: 40 MG, DAILY
     Route: 064
  4. PRAZOSIN HCL [Suspect]
     Active Substance: PRAZOSIN HYDROCHLORIDE
     Dosage: 15 MG, DAILY
     Route: 064
  5. SODIUM AMYTAL [Suspect]
     Active Substance: AMOBARBITAL SODIUM
     Dosage: 600 MG, DAILY
     Route: 064
  6. FUROSEMIDE. [Suspect]
     Active Substance: FUROSEMIDE
     Indication: RENOVASCULAR HYPERTENSION
     Dosage: 80 MG, DAILY
     Route: 064
  7. NIFEDIPINE. [Suspect]
     Active Substance: NIFEDIPINE
     Indication: RENOVASCULAR HYPERTENSION
     Dosage: UNK
     Route: 064

REACTIONS (3)
  - Respiratory distress [Recovering/Resolving]
  - Maternal exposure during pregnancy [Unknown]
  - Premature baby [Unknown]
